FAERS Safety Report 8124430 (Version 2)
Quarter: 2012Q4

REPORT INFORMATION
  Report Type: 
  Country: US (occurrence: US)
  Receive Date: 20110907
  Receipt Date: 20120830
  Transmission Date: 20130627
  Serious: Yes (Hospitalization)
  Sender: FDA-Public Use
  Company Number: US-GLAXOSMITHKLINE-A0920791A

PATIENT
  Age: 50 Year
  Sex: Male

DRUGS (1)
  1. AVANDIA [Suspect]
     Indication: DIABETES MELLITUS
     Dosage: 4MG Per day
     Route: 048
     Dates: start: 20020823, end: 200711

REACTIONS (6)
  - Myocardial infarction [Unknown]
  - Ischaemic cardiomyopathy [Unknown]
  - Cardiac failure congestive [Unknown]
  - Ejection fraction decreased [Unknown]
  - Coronary artery bypass [Unknown]
  - Coronary artery disease [Unknown]
